FAERS Safety Report 18501689 (Version 1)
Quarter: 2020Q4

REPORT INFORMATION
  Report Type: Spontaneous
  Country: HR (occurrence: HR)
  Receive Date: 20201113
  Receipt Date: 20201113
  Transmission Date: 20210114
  Serious: Yes (Other)
  Sender: FDA-Public Use
  Company Number: NVSC2020HR298492

PATIENT
  Age: 59 Year
  Sex: Male

DRUGS (4)
  1. PERINDOPRIL [Suspect]
     Active Substance: PERINDOPRIL
     Indication: PRODUCT USED FOR UNKNOWN INDICATION
     Dosage: 8 MG
     Route: 065
  2. PROPAFENONA HIDROCLORURO (912CH) [Suspect]
     Active Substance: PROPAFENONE
     Indication: PRODUCT USED FOR UNKNOWN INDICATION
     Dosage: 150 MG 2-3XDAY
     Route: 065
  3. APIXABAN [Suspect]
     Active Substance: APIXABAN
     Indication: PRODUCT USED FOR UNKNOWN INDICATION
     Dosage: 10 MG, QD (5 MG, 2X/DAY)
     Route: 065
  4. ATORVASTATIN CALCIUM. [Suspect]
     Active Substance: ATORVASTATIN CALCIUM
     Indication: PRODUCT USED FOR UNKNOWN INDICATION
     Dosage: 20 MG
     Route: 065

REACTIONS (5)
  - Carotid artery stenosis [Unknown]
  - Heart rate increased [Unknown]
  - Fatigue [Unknown]
  - Left atrial enlargement [Unknown]
  - Supraventricular extrasystoles [Unknown]

NARRATIVE: CASE EVENT DATE: 2020
